FAERS Safety Report 9878511 (Version 1)
Quarter: 2014Q1

REPORT INFORMATION
  Report Type: Spontaneous
  Country: NO (occurrence: NO)
  Receive Date: 20140206
  Receipt Date: 20140206
  Transmission Date: 20141002
  Serious: Yes (Death, Other)
  Sender: FDA-Public Use
  Company Number: NO-BRISTOL-MYERS SQUIBB COMPANY-20113197

PATIENT
  Sex: 0

DRUGS (14)
  1. ACETAMINOPHEN [Suspect]
  2. WARFARIN SODIUM [Interacting]
  3. MORPHINE SULFATE [Interacting]
  4. BUPRENORPHINE [Interacting]
  5. DIAZEPAM [Interacting]
  6. DIGITOXIN [Interacting]
  7. FENTANYL [Interacting]
  8. HYDROCHLOROTHIAZIDE [Interacting]
  9. KETOBEMIDONE [Interacting]
  10. MIDAZOLAM [Interacting]
  11. OXAZEPAM [Interacting]
  12. OXYCODONE [Interacting]
  13. SIMVASTATIN [Interacting]
  14. TRAMADOL HCL [Interacting]

REACTIONS (2)
  - Death [Fatal]
  - Drug interaction [Unknown]
